FAERS Safety Report 10689399 (Version 1)
Quarter: 2015Q1

REPORT INFORMATION
  Report Type: Spontaneous
  Country: SE (occurrence: SE)
  Receive Date: 20150105
  Receipt Date: 20150105
  Transmission Date: 20150720
  Serious: Yes (Hospitalization)
  Sender: FDA-Public Use
  Company Number: SE-AUROBINDO-AUR-APL-2014-13665

PATIENT
  Age: 69 Year
  Sex: Male

DRUGS (1)
  1. AMLODIPINE AUROBINDO 10MG TABLETS [Suspect]
     Active Substance: AMLODIPINE BESYLATE
     Indication: PRODUCT USED FOR UNKNOWN INDICATION
     Dosage: 10 MG, UNK
     Route: 065

REACTIONS (5)
  - Local swelling [Recovered/Resolved with Sequelae]
  - Blindness [Recovered/Resolved with Sequelae]
  - Dyspnoea [Recovered/Resolved with Sequelae]
  - Temporal arteritis [Recovered/Resolved with Sequelae]
  - Asthenia [Recovered/Resolved with Sequelae]
